FAERS Safety Report 14173921 (Version 2)
Quarter: 2017Q4

REPORT INFORMATION
  Report Type: Spontaneous
  Country: SK (occurrence: SK)
  Receive Date: 20171109
  Receipt Date: 20171213
  Transmission Date: 20180321
  Serious: Yes (Death, Other)
  Sender: FDA-Public Use
  Company Number: SK-SHIRE-SK201728430

PATIENT

DRUGS (1)
  1. SUBCUVIA [Suspect]
     Active Substance: HUMAN IMMUNOGLOBULIN G
     Indication: IMMUNODEFICIENCY COMMON VARIABLE
     Dosage: MONTHLY DOSE FROM 9.6 G TO 19.2 G.
     Route: 065
     Dates: start: 20140514

REACTIONS (6)
  - Metastases to lymph nodes [Fatal]
  - Malignant lymphoid neoplasm [Fatal]
  - Metastases to lung [Fatal]
  - Metastases to liver [Fatal]
  - Metastases to kidney [Fatal]
  - Metabolic disorder [Fatal]
